FAERS Safety Report 13369226 (Version 1)
Quarter: 2017Q1

REPORT INFORMATION
  Report Type: Spontaneous
  Country: US (occurrence: US)
  Receive Date: 20170324
  Receipt Date: 20170324
  Transmission Date: 20170429
  Serious: Yes (Hospitalization)
  Sender: FDA-Public Use
  Company Number: None

PATIENT
  Age: 41 Year
  Sex: Female
  Weight: 67.6 kg

DRUGS (19)
  1. APIXABAN BRISTOL MYERS SQUIBB [Suspect]
     Active Substance: APIXABAN
     Indication: EMBOLISM VENOUS
     Dosage: 10 MG BID X 7D, ?THEN 5MG BID
     Route: 048
     Dates: start: 20170301
  2. CHOLECALCIFEROL (VITAMIN D3) [Concomitant]
  3. SYNTHROID [Concomitant]
     Active Substance: LEVOTHYROXINE SODIUM
  4. QUETIAPINE (SEROQUEL) [Concomitant]
  5. DILAUDID [Concomitant]
     Active Substance: HYDROMORPHONE HYDROCHLORIDE
  6. STUDY/INVESTIGATIONAL DRUG [Concomitant]
  7. CYMBALTA [Concomitant]
     Active Substance: DULOXETINE HYDROCHLORIDE
  8. POTASSIUM CITRATE. [Concomitant]
     Active Substance: POTASSIUM CITRATE
  9. TYLENOL [Concomitant]
     Active Substance: ACETAMINOPHEN
  10. ALDOMETASONE (ACLOVATE) [Concomitant]
  11. ALLOPURINOL (ZYLOPRIM) [Concomitant]
  12. DRONABINOL (MARINOL) [Concomitant]
  13. CLINDAMYCIN (CLEOCIN T) [Concomitant]
  14. TENEX [Concomitant]
     Active Substance: GUANFACINE HYDROCHLORIDE
  15. LORAZEPAM (ATIVAN) [Concomitant]
  16. OSIMERTINIB MESYLATE (TAGRISSO) [Concomitant]
  17. DONEPEZIL (ARICEPT) [Concomitant]
  18. KEPPRA [Concomitant]
     Active Substance: LEVETIRACETAM
  19. ZOFRAN [Concomitant]
     Active Substance: ONDANSETRON HYDROCHLORIDE

REACTIONS (1)
  - Lung adenocarcinoma metastatic [None]

NARRATIVE: CASE EVENT DATE: 20170323
